FAERS Safety Report 12498997 (Version 1)
Quarter: 2016Q2

REPORT INFORMATION
  Report Type: Spontaneous
  Country: US (occurrence: US)
  Receive Date: 20160627
  Receipt Date: 20160627
  Transmission Date: 20160815
  Serious: No
  Sender: FDA-Public Use
  Company Number: US-TEVA-642171USA

PATIENT
  Sex: Female

DRUGS (1)
  1. TRI-LO SPRINTEC [Suspect]
     Active Substance: ETHINYL ESTRADIOL\NORGESTIMATE
     Route: 065

REACTIONS (4)
  - Abdominal pain upper [Unknown]
  - Adverse event [Unknown]
  - Headache [Unknown]
  - Product substitution issue [Unknown]
